FAERS Safety Report 5946969-5 (Version None)
Quarter: 2008Q4

REPORT INFORMATION
  Report Type: 
  Country: None (occurrence: None)
  Receive Date: 20081107
  Receipt Date: 20081107
  Transmission Date: 20090506
  Serious: Yes (Hospitalization)
  Sender: FDA-Public Use
  Company Number: None

PATIENT
  Sex: Male
  Weight: 73 kg

DRUGS (6)
  1. CYCLOPHOSPHAMIDE [Suspect]
     Dosage: 1358 MG
  2. DOXORUBICIN HYDROCHLORIDE [Suspect]
     Dosage: 72.4 MG
  3. ETOPOSIDE [Suspect]
     Dosage: 362 MG
  4. PREDNISONE TAB [Suspect]
     Dosage: 1100 MG
  5. RITUXIMAB (MOAB C2B8 ANTI CD20, CHIMERIC) [Suspect]
     Dosage: 679 MG
  6. VINCRISTINE SULFATE [Suspect]
     Dosage: 2.16 MG

REACTIONS (3)
  - ASTHENIA [None]
  - HYPOPHAGIA [None]
  - INFECTION [None]
